FAERS Safety Report 19449771 (Version 1)
Quarter: 2021Q2

REPORT INFORMATION
  Report Type: Spontaneous
  Country: IT (occurrence: IT)
  Receive Date: 20210622
  Receipt Date: 20210622
  Transmission Date: 20210717
  Serious: Yes (Hospitalization, Other)
  Sender: FDA-Public Use
  Company Number: IT-PFIZER INC-2021661505

PATIENT
  Sex: Male

DRUGS (2)
  1. PREDNISONE. [Concomitant]
     Active Substance: PREDNISONE
     Dosage: 20 MG, QD
  2. SULFASALAZINE. [Suspect]
     Active Substance: SULFASALAZINE
     Dosage: UNK

REACTIONS (12)
  - Splenomegaly [Recovered/Resolved]
  - Pyrexia [Recovered/Resolved]
  - Dermatitis exfoliative generalised [Recovered/Resolved]
  - Leukocytosis [Recovered/Resolved]
  - Rash vesicular [Recovered/Resolved]
  - Angioedema [Recovered/Resolved]
  - Eosinophilia [Recovered/Resolved]
  - Lymphadenopathy [Recovered/Resolved]
  - Drug hypersensitivity [Recovered/Resolved]
  - Skin reaction [Recovered/Resolved]
  - Purpura [Recovered/Resolved]
  - Skin exfoliation [Recovered/Resolved]
